FAERS Safety Report 11175104 (Version 1)
Quarter: 2015Q2

REPORT INFORMATION
  Report Type: Spontaneous
  Country: US (occurrence: None)
  Receive Date: 20150515
  Receipt Date: 20150515
  Transmission Date: 20150821
  Serious: Yes (Other)
  Sender: FDA-Public Use
  Company Number: 2014002300

PATIENT
  Sex: Female

DRUGS (9)
  1. NORCO (HYDROCODONE BITRRTRATE, PARACEMTOL) [Concomitant]
  2. TRAMADOL (TRAMADOL ( HYDROCHLORIDE) [Concomitant]
  3. SULFASALAZINE (SULFASALAZINE) [Concomitant]
     Active Substance: SULFASALAZINE
  4. LIDODERM (LIDODERM) [Concomitant]
  5. FOLIFIC ACID (FOLIFIC ACID) [Concomitant]
  6. PLAQUENIL (HYDROXYCHLOROQUINE PHSAPHATE) [Concomitant]
  7. VOLTREN (DICLOFENAC DIETHYLAMINE) GEL [Concomitant]
  8. CIMZIA [Suspect]
     Active Substance: CERTOLIZUMAB PEGOL
     Indication: RHEUMATOID ARTHRITIS
     Dosage: 400 MG, EV 4 WEEKS, SUBCUTANEOUS
     Route: 058
  9. ARAVA (LEFLUNOMID) [Concomitant]

REACTIONS (1)
  - Cerebrovascular accident [None]

NARRATIVE: CASE EVENT DATE: 2014
